FAERS Safety Report 25086205 (Version 1)
Quarter: 2025Q1

REPORT INFORMATION
  Report Type: Spontaneous
  Country: US (occurrence: US)
  Receive Date: 20250317
  Receipt Date: 20250317
  Transmission Date: 20250409
  Serious: Yes (Hospitalization)
  Sender: NOBELPHARMA AMERICA, LLC
  Company Number: US-NPC-NPA-2025-00336

PATIENT
  Sex: Male

DRUGS (19)
  1. HYFTOR [Suspect]
     Active Substance: SIROLIMUS
     Indication: Tuberous sclerosis complex
     Route: 003
     Dates: start: 20250123
  2. HIZENTRA [Concomitant]
     Active Substance: HUMAN IMMUNOGLOBULIN G
  3. VIMPAT [Concomitant]
     Active Substance: LACOSAMIDE
  4. VALTOCO [Concomitant]
     Active Substance: DIAZEPAM
  5. KLONOPIN [Concomitant]
     Active Substance: CLONAZEPAM
  6. LOSARTAN POTASSIUM [Concomitant]
     Active Substance: LOSARTAN POTASSIUM
  7. HEPARIN [Concomitant]
     Active Substance: HEPARIN SODIUM
  8. SODIUM CHLORIDE [Concomitant]
     Active Substance: SODIUM CHLORIDE
  9. SINEMET [Concomitant]
     Active Substance: CARBIDOPA\LEVODOPA
  10. COGENTIN [Concomitant]
     Active Substance: BENZTROPINE MESYLATE
  11. MELATONIN [Concomitant]
     Active Substance: MELATONIN
  12. CLONIDINE [Concomitant]
     Active Substance: CLONIDINE
  13. TRAZODONE [Concomitant]
     Active Substance: TRAZODONE HYDROCHLORIDE
  14. AMBIEN [Concomitant]
     Active Substance: ZOLPIDEM TARTRATE
  15. PROTONIX [Concomitant]
     Active Substance: PANTOPRAZOLE SODIUM
  16. ZOFRAN [Concomitant]
     Active Substance: ONDANSETRON HYDROCHLORIDE
  17. PROMETHAZINE [Concomitant]
     Active Substance: PROMETHAZINE HYDROCHLORIDE
  18. LOVENOX [Concomitant]
     Active Substance: ENOXAPARIN SODIUM
  19. Tylenol children?s suspension cherry [Concomitant]

REACTIONS (2)
  - Hospitalisation [Unknown]
  - Product dose omission issue [Unknown]
